FAERS Safety Report 8906335 (Version 1)
Quarter: 2012Q4

REPORT INFORMATION
  Report Type: Spontaneous
  Country: US (occurrence: None)
  Receive Date: 20121112
  Receipt Date: 20121112
  Transmission Date: 20130627
  Serious: Yes (Life-Threatening, Hospitalization)
  Sender: FDA-Public Use
  Company Number: None

PATIENT
  Age: 49 Year
  Sex: Female
  Weight: 59.88 kg

DRUGS (2)
  1. ROCEPHIN [Suspect]
     Indication: CELLULITIS
     Dosage: unsure once IM
     Route: 048
     Dates: start: 20120821, end: 20120821
  2. AUGMENTIN [Suspect]
     Indication: CELLULITIS
     Dates: start: 20120821, end: 20120830

REACTIONS (2)
  - Diarrhoea [None]
  - Clostridium test positive [None]
